FAERS Safety Report 9275164 (Version 1)
Quarter: 2013Q2

REPORT INFORMATION
  Report Type: Spontaneous
  Country: US (occurrence: None)
  Receive Date: 20130430
  Receipt Date: 20130430
  Transmission Date: 20140414
  Serious: Yes (Other)
  Sender: FDA-Public Use
  Company Number: E2B-00000777

PATIENT
  Age: 59 Year
  Sex: Female
  Weight: 83.92 kg

DRUGS (3)
  1. AMLODIPINE BESYLATE AND BENAZEPRIL HYDROCHLORIDE [Suspect]
     Indication: HYPERTENSION
     Dosage: 1 DOSAGE FORMS (1 DOSAGE FORMS, 1 IN 1 D), PER ORAL
     Route: 048
  2. FLUTICASONE AND SALMETEROL (ADVAIR) (INHALER) [Concomitant]
  3. METFORMIN [Concomitant]

REACTIONS (5)
  - Suicidal ideation [None]
  - Diarrhoea [None]
  - Product substitution issue [None]
  - Capsule physical issue [None]
  - Counterfeit drug administered [None]
